FAERS Safety Report 5863421-6 (Version None)
Quarter: 2008Q3

REPORT INFORMATION
  Report Type: 
  Country: None (occurrence: None)
  Receive Date: 20080828
  Receipt Date: 20080828
  Transmission Date: 20090109
  Serious: Yes (Hospitalization)
  Sender: FDA-Public Use
  Company Number: PHEH2000US10113

PATIENT
  Sex: Male
  Weight: 90.6 kg

DRUGS (2)
  1. DIOVAN T30230+ [Suspect]
     Indication: CARDIAC FAILURE CONGESTIVE
     Dosage: 40-160 MG, BID
     Route: 048
     Dates: start: 20000523, end: 20000831
  2. LISINOPRIL [Concomitant]
     Indication: CARDIAC FAILURE CONGESTIVE
     Dosage: 10 MG, QD
     Route: 048
     Dates: start: 20000501, end: 20000831

REACTIONS (3)
  - ANGINA UNSTABLE [None]
  - DISEASE PROGRESSION [None]
  - HYPERKALAEMIA [None]
